FAERS Safety Report 15895489 (Version 2)
Quarter: 2019Q1

REPORT INFORMATION
  Report Type: Report from Study
  Country: IE (occurrence: IE)
  Receive Date: 20190131
  Receipt Date: 20190218
  Transmission Date: 20190417
  Serious: Yes (Hospitalization, Other)
  Sender: FDA-Public Use
  Company Number: IE-BRISTOL-MYERS SQUIBB COMPANY-BMS-2018-112630

PATIENT
  Sex: Female

DRUGS (1)
  1. NIVOLUMAB [Suspect]
     Active Substance: NIVOLUMAB
     Indication: RENAL CELL CARCINOMA
     Dosage: UNK
     Route: 065
     Dates: start: 20181126

REACTIONS (12)
  - Dementia [Not Recovered/Not Resolved]
  - Liver function test increased [Recovered/Resolved]
  - Dry skin [Unknown]
  - Rash [Recovering/Resolving]
  - Mobility decreased [Unknown]
  - Rash erythematous [Not Recovered/Not Resolved]
  - Pruritus [Unknown]
  - Discomfort [Unknown]
  - Confusional state [Not Recovered/Not Resolved]
  - Fatigue [Recovered/Resolved]
  - Impaired quality of life [Unknown]
  - Insomnia [Unknown]
